FAERS Safety Report 5674781-3 (Version None)
Quarter: 2008Q1

REPORT INFORMATION
  Report Type: 
  Country: None (occurrence: None)
  Receive Date: 20080320
  Receipt Date: 20080311
  Transmission Date: 20080703
  Serious: Yes (Hospitalization)
  Sender: FDA-Public Use
  Company Number: FR-ASTRAZENECA-2008CG00067

PATIENT
  Age: 31767 Day
  Sex: Female

DRUGS (12)
  1. HYTACAND [Suspect]
     Indication: ESSENTIAL HYPERTENSION
     Dosage: 16 + 12.5 MG ONCE DAILY
     Route: 048
     Dates: end: 20070826
  2. BRISTOPEN [Suspect]
     Indication: SUPERINFECTION
     Route: 048
     Dates: start: 20070826, end: 20070828
  3. ZALDIAR [Suspect]
     Indication: PAIN
     Route: 048
     Dates: start: 20070802, end: 20070825
  4. ARICEPT [Suspect]
     Indication: DEMENTIA ALZHEIMER'S TYPE
     Route: 048
     Dates: end: 20070829
  5. LOVENOX [Suspect]
     Route: 058
     Dates: start: 20070825, end: 20070827
  6. ATACAND [Concomitant]
     Route: 048
     Dates: start: 20070827, end: 20070828
  7. NOLVADEX [Concomitant]
     Route: 048
  8. ASPEGIC 1000 [Concomitant]
  9. LEVOTHYROXINE SODIUM [Concomitant]
     Route: 048
  10. ATHYMIL [Concomitant]
  11. ORBENINE [Concomitant]
     Indication: SUPERINFECTION
     Route: 048
     Dates: start: 20070820, end: 20070824
  12. XYZAL [Concomitant]
     Dates: start: 20070827, end: 20070904

REACTIONS (1)
  - NEPHRITIS [None]
